FAERS Safety Report 9954385 (Version 3)
Quarter: 2014Q2

REPORT INFORMATION
  Report Type: Spontaneous
  Country: SE (occurrence: SE)
  Receive Date: 20140304
  Receipt Date: 20140401
  Transmission Date: 20141212
  Serious: Yes (Disabling, Other)
  Sender: FDA-Public Use
  Company Number: PHHY2014SE021329

PATIENT
  Age: 17 Year
  Sex: Female

DRUGS (1)
  1. RITALIN LA [Suspect]
     Dosage: ONE CAPSULE ONCE A DAY, EXTRA IF NEEDED IN THE AFTERNOON
     Route: 048
     Dates: start: 20131119

REACTIONS (2)
  - Wrong technique in drug usage process [Unknown]
  - Drug ineffective [Unknown]
